FAERS Safety Report 7844189-0 (Version None)
Quarter: 2011Q4

REPORT INFORMATION
  Report Type: 
  Country: None (occurrence: None)
  Receive Date: 20111025
  Receipt Date: 20111011
  Transmission Date: 20120403
  Serious: Yes (Hospitalization, Other)
  Sender: FDA-Public Use
  Company Number: US-ELI_LILLY_AND_COMPANY-US201012000613

PATIENT
  Sex: Female

DRUGS (31)
  1. FORTEO [Suspect]
     Dosage: 20 UG, QD
     Route: 065
  2. SYNTHROID [Concomitant]
     Dosage: 0.15 MG, UNKNOWN
     Route: 065
  3. TRUSOPT [Concomitant]
     Dosage: UNK, UNKNOWN
     Route: 065
  4. MUCINEX [Concomitant]
     Dosage: UNK, UNKNOWN
     Route: 065
  5. KLOR-CON [Concomitant]
     Dosage: 20 MG, UNKNOWN
     Route: 065
  6. TOPAMAX [Concomitant]
     Dosage: 100 MG, QD
     Route: 065
  7. ADVAIR DISKUS 100/50 [Concomitant]
     Dosage: UNK, BID
     Route: 065
  8. FORTEO [Suspect]
     Dosage: 20 UG, QD
     Route: 065
  9. FORTEO [Suspect]
     Dosage: 20 UG, QD
  10. CELEBREX [Concomitant]
     Dosage: 200 MG, UNKNOWN
     Route: 065
  11. DIAZEPAM [Concomitant]
     Dosage: 5 MG, OTHER
     Route: 065
  12. MIRAPEX [Concomitant]
     Dosage: 0.5 MG, BID
     Route: 065
  13. NEURONTIN [Concomitant]
     Dosage: 300 MG, BID
     Route: 065
  14. FORTEO [Suspect]
     Dosage: 20 UG, QD
  15. HYDROCODONE BITARTRATE [Concomitant]
     Dosage: 500 MG, BID
     Route: 065
  16. SINGULAIR [Concomitant]
     Dosage: 10 MG, OTHER
     Route: 065
  17. LASIX [Concomitant]
     Dosage: 80 MG, UNKNOWN
     Route: 065
  18. TRAZODONE HYDROCHLORIDE [Concomitant]
     Dosage: 50 MG, OTHER
     Route: 065
  19. WARFARIN SODIUM [Concomitant]
     Dosage: 7.5 MG, QD
     Route: 065
  20. FIORICET [Concomitant]
     Dosage: UNK, PRN
     Route: 065
  21. EFFEXOR XR [Concomitant]
     Dosage: UNK, UNKNOWN
     Route: 065
  22. LIPITOR [Concomitant]
     Dosage: 40 MG, UNKNOWN
     Route: 065
  23. FLONASE [Concomitant]
     Dosage: UNK, UNKNOWN
     Route: 065
  24. MULTI-VITAMIN [Concomitant]
     Dosage: UNK, UNKNOWN
     Route: 065
  25. IRON [Concomitant]
     Dosage: UNK, UNKNOWN
     Route: 065
  26. FORTEO [Suspect]
     Indication: OSTEOPOROSIS
     Dosage: 20 UG, QD
     Route: 065
     Dates: start: 20100929
  27. METOPROLOL TARTRATE [Concomitant]
     Dosage: 25 MG, BID
     Route: 065
  28. CALCIUM CARBONATE [Concomitant]
     Dosage: 1500 MG, QD
     Route: 065
  29. PRESERVISION LUTEIN EYE VITA.+MIN.SUP.SOFTG. [Concomitant]
     Dosage: UNK, UNKNOWN
     Route: 065
  30. LISINOPRIL [Concomitant]
     Dosage: 40 MG, BID
     Route: 065
  31. NEXIUM [Concomitant]
     Dosage: 40 MG, UNKNOWN
     Route: 065

REACTIONS (7)
  - FOOT FRACTURE [None]
  - VISUAL IMPAIRMENT [None]
  - SOMNOLENCE [None]
  - CARDIAC OPERATION [None]
  - MACULAR DEGENERATION [None]
  - GLAUCOMA [None]
  - FALL [None]
